FAERS Safety Report 7743783-5 (Version None)
Quarter: 2011Q3

REPORT INFORMATION
  Report Type: 
  Country: None (occurrence: None)
  Receive Date: 20110912
  Receipt Date: 20110902
  Transmission Date: 20111222
  Serious: Yes (Death, Hospitalization)
  Sender: FDA-Public Use
  Company Number: US-GLAXOSMITHKLINE-A0812221A

PATIENT
  Age: 68 Year
  Sex: Female

DRUGS (7)
  1. ARTHROTEC [Concomitant]
  2. VASOTEC [Concomitant]
  3. PEPCID [Concomitant]
  4. NIFEDIPINE [Concomitant]
  5. ATENOLOL [Concomitant]
  6. PAXIL [Concomitant]
  7. AVANDIA [Suspect]
     Indication: TYPE 2 DIABETES MELLITUS
     Dosage: 4MG TWICE PER DAY
     Route: 048
     Dates: start: 20001201, end: 20080519

REACTIONS (4)
  - DEATH [None]
  - CEREBROVASCULAR ACCIDENT [None]
  - CEREBRAL HAEMATOMA [None]
  - THALAMUS HAEMORRHAGE [None]
